FAERS Safety Report 9701575 (Version 2)
Quarter: 2013Q4

REPORT INFORMATION
  Report Type: Spontaneous
  Country: US (occurrence: US)
  Receive Date: 20131121
  Receipt Date: 20131218
  Transmission Date: 20140711
  Serious: Yes (Other)
  Sender: FDA-Public Use
  Company Number: US-FRI-1000051502

PATIENT
  Age: 51 Year
  Sex: Female

DRUGS (2)
  1. ARMOUR THYROID [Suspect]
     Indication: AUTOIMMUNE THYROIDITIS
     Dosage: 60 MG
     Route: 048
     Dates: start: 201204, end: 201311
  2. MVI [Concomitant]

REACTIONS (10)
  - Hernia obstructive [Recovered/Resolved]
  - Lethargy [Not Recovered/Not Resolved]
  - Feeling abnormal [Not Recovered/Not Resolved]
  - Alopecia [Not Recovered/Not Resolved]
  - Weight increased [Not Recovered/Not Resolved]
  - Peripheral coldness [Not Recovered/Not Resolved]
  - Bone pain [Not Recovered/Not Resolved]
  - Myalgia [Not Recovered/Not Resolved]
  - Goitre [Not Recovered/Not Resolved]
  - Eye pain [Not Recovered/Not Resolved]
